FAERS Safety Report 12386026 (Version 1)
Quarter: 2016Q2

REPORT INFORMATION
  Report Type: Spontaneous
  Country: CH (occurrence: CH)
  Receive Date: 20160519
  Receipt Date: 20160519
  Transmission Date: 20160815
  Serious: Yes (Hospitalization)
  Sender: FDA-Public Use
  Company Number: CH-TEVA-658734ISR

PATIENT
  Age: 84 Year
  Sex: Female

DRUGS (5)
  1. PANTOZOL [Concomitant]
     Active Substance: PANTOPRAZOLE SODIUM
     Dosage: 20 MILLIGRAM DAILY; ENTERIC-COATED TABLET, STRENGTH 20 MG
     Route: 048
  2. DAFALGAN [Concomitant]
     Active Substance: ACETAMINOPHEN
     Dosage: 2000 MILLIGRAM DAILY; STRENGTH 500 MG
     Route: 048
  3. CITALOPRAM-MEPHA [Suspect]
     Active Substance: CITALOPRAM HYDROBROMIDE
     Route: 048
     Dates: start: 2016, end: 20160414
  4. IMOVANE [Concomitant]
     Active Substance: ZOPICLONE
     Dosage: .5 DOSAGE FORMS DAILY; STRENGTH 7.5 MG
     Route: 048
  5. XARELTO [Concomitant]
     Active Substance: RIVAROXABAN
     Dosage: 20 MILLIGRAM DAILY; STRENGTH 20 MG
     Route: 048

REACTIONS (4)
  - Inappropriate antidiuretic hormone secretion [Recovered/Resolved]
  - Vertigo [Recovering/Resolving]
  - Hyponatraemia [Recovered/Resolved]
  - Asthenia [Recovering/Resolving]

NARRATIVE: CASE EVENT DATE: 20160414
